FAERS Safety Report 21326774 (Version 2)
Quarter: 2024Q2

REPORT INFORMATION
  Report Type: Spontaneous
  Country: GB (occurrence: GB)
  Receive Date: 20220913
  Receipt Date: 20240429
  Transmission Date: 20240715
  Serious: Yes (Hospitalization, Other)
  Sender: FDA-Public Use
  Company Number: GB-TEVA-2022-GB-2072370

PATIENT
  Sex: Female

DRUGS (17)
  1. AMITRIPTYLINE [Suspect]
     Active Substance: AMITRIPTYLINE
     Indication: Back pain
     Route: 065
  2. OLANZAPINE [Suspect]
     Active Substance: OLANZAPINE
     Indication: Major depression
     Route: 065
  3. MIRTAZAPINE [Suspect]
     Active Substance: MIRTAZAPINE
     Indication: Major depression
     Route: 065
  4. THIAMINE [Concomitant]
     Active Substance: THIAMINE
     Indication: Vitamin supplementation
     Route: 042
  5. LEVOTHYROXINE [Concomitant]
     Active Substance: LEVOTHYROXINE\LEVOTHYROXINE SODIUM
     Indication: Hypothyroidism
     Route: 065
  6. ACETAMINOPHEN [Concomitant]
     Active Substance: ACETAMINOPHEN
     Indication: Back pain
     Route: 065
  7. CANDESARTAN [Concomitant]
     Active Substance: CANDESARTAN
     Indication: Product used for unknown indication
     Route: 065
  8. NORTRIPTYLINE [Suspect]
     Active Substance: NORTRIPTYLINE
     Indication: Back pain
     Route: 065
  9. PREGABALIN [Suspect]
     Active Substance: PREGABALIN
     Indication: Back pain
     Dosage: DOSAGE TEXT: 12 WEEKS BEFORE ADMISSION
     Route: 065
  10. PREGABALIN [Suspect]
     Active Substance: PREGABALIN
     Indication: Back pain
     Dosage: DOSAGE TEXT: 150MG IN THE DAY TIME AND 100MG IN THE LATTER PART OF THE DAY (9 WEEKS BEFORE ADMISS...
     Route: 065
  11. PREGABALIN [Suspect]
     Active Substance: PREGABALIN
     Indication: Back pain
     Dosage: DOSAGE TEXT: 7 WEEKS BEFORE ADMISSION
     Route: 065
  12. PREGABALIN [Suspect]
     Active Substance: PREGABALIN
     Indication: Back pain
     Dosage: DOSAGE TEXT: AT 5-6 WEEKS BEFORE ADMISSION
     Route: 065
  13. PREGABALIN [Suspect]
     Active Substance: PREGABALIN
     Indication: Back pain
     Dosage: DOSAGE TEXT: AT 24 WEEKS BEFORE ADMISSION
     Route: 065
  14. PREGABALIN [Suspect]
     Active Substance: PREGABALIN
     Indication: Back pain
     Dosage: DOSAGE TEXT: 300MG IN THE DAY TIME AND 200MG IN THE LATTER PART OF THE DAY (23 WEEKS BEFORE ADMIS...
     Route: 065
  15. PREGABALIN [Suspect]
     Active Substance: PREGABALIN
     Indication: Back pain
     Dosage: DOSAGE TEXT: 16 WEEKS BEFORE ADMISSION
     Route: 065
  16. PREGABALIN [Suspect]
     Active Substance: PREGABALIN
     Indication: Back pain
     Dosage: DOSAGE TEXT: 250MG IN THE DAY TIME AND 200MG IN THE LATTER PART OF THE DAY (13 WEEKS BEFORE ADMIS...
     Route: 065
  17. DULOXETINE [Suspect]
     Active Substance: DULOXETINE
     Indication: Pain
     Route: 065

REACTIONS (7)
  - Major depression [Recovered/Resolved]
  - Constipation [Unknown]
  - Nausea [Unknown]
  - Hyperhidrosis [Unknown]
  - Withdrawal syndrome [Recovered/Resolved]
  - Drug ineffective [Unknown]
  - Hallucination [Unknown]
